FAERS Safety Report 13841095 (Version 1)
Quarter: 2017Q3

REPORT INFORMATION
  Report Type: Not Available
  Country: GB (occurrence: GB)
  Receive Date: 20170807
  Receipt Date: 20170807
  Transmission Date: 20171127
  Serious: Yes (Death)
  Sender: FDA-Public Use
  Company Number: GB-3M-2017-UK-000033

PATIENT
  Age: 30 Year
  Sex: Female

DRUGS (1)
  1. CHLORHEXIDINE GLUCONATE (NON-SPECIFIC) [Suspect]
     Active Substance: CHLORHEXIDINE GLUCONATE
     Route: 061
     Dates: start: 201102

REACTIONS (3)
  - Anaphylactic reaction [Fatal]
  - Death [Fatal]
  - Anaphylactic shock [Fatal]

NARRATIVE: CASE EVENT DATE: 201102
